FAERS Safety Report 4380386-7 (Version None)
Quarter: 2004Q2

REPORT INFORMATION
  Report Type: 
  Country: None (occurrence: None)
  Receive Date: 20040616
  Receipt Date: 20040616
  Transmission Date: 20050107
  Serious: Yes (Other)
  Sender: FDA-Public Use
  Company Number: None

PATIENT
  Age: 83 Year
  Sex: Male
  Weight: 80.831 kg

DRUGS (1)
  1. SEPTRA DS [Suspect]
     Indication: FUNGAL CYSTITIS
     Dosage: ONE DOSE PO BID
     Route: 048

REACTIONS (4)
  - DISCOMFORT [None]
  - GENITAL PAIN MALE [None]
  - OEDEMA GENITAL [None]
  - SWELLING FACE [None]
